FAERS Safety Report 13073113 (Version 2)
Quarter: 2017Q1

REPORT INFORMATION
  Report Type: Spontaneous
  Country: US (occurrence: US)
  Receive Date: 20161229
  Receipt Date: 20170112
  Transmission Date: 20170428
  Serious: Yes (Death, Hospitalization, Other)
  Sender: FDA-Public Use
  Company Number: US-ACTELION-A-US2016-147602

PATIENT
  Age: 68 Year
  Sex: Female

DRUGS (19)
  1. MINIPRESS [Concomitant]
     Active Substance: PRAZOSIN HYDROCHLORIDE
     Dosage: 1 MG, TID
     Route: 048
     Dates: start: 20161110
  2. TYLENOL [Concomitant]
     Active Substance: ACETAMINOPHEN
     Dosage: 650 MG, PRN, Q6HRS
     Route: 048
  3. PROAIR HFA [Concomitant]
     Active Substance: ALBUTEROL SULFATE
     Dosage: 2 PUFFS, Q6HRS, PRN
     Route: 045
  4. METHOTREXATE. [Concomitant]
     Active Substance: METHOTREXATE
     Dosage: 10 MG, Q1WEEK, 2.5MG TABLET
     Route: 048
     Dates: start: 20160128
  5. PROVENTIL [Concomitant]
     Active Substance: ALBUTEROL
     Dosage: 3 ML, Q6HRS, PRN
     Dates: start: 20160711
  6. SALAGEN [Concomitant]
     Active Substance: PILOCARPINE HYDROCHLORIDE
     Dosage: UNK, QID
     Route: 048
     Dates: start: 20160128
  7. KLOR-CON [Concomitant]
     Active Substance: POTASSIUM CHLORIDE
     Dosage: 10 MEQ, QD
     Route: 048
     Dates: start: 20150929
  8. REVATIO [Concomitant]
     Active Substance: SILDENAFIL CITRATE
     Dosage: 20 MG, TID
     Route: 048
     Dates: start: 20160907
  9. ULTRAM [Concomitant]
     Active Substance: TRAMADOL HYDROCHLORIDE
     Dosage: 50 MG, Q6HRS, PRN
     Dates: start: 20160812
  10. KLONOPIN [Concomitant]
     Active Substance: CLONAZEPAM
     Dosage: 2 MG, QPM
     Route: 048
     Dates: start: 20160812
  11. NORCO [Concomitant]
     Active Substance: ACETAMINOPHEN\HYDROCODONE BITARTRATE
     Dosage: Q6HRS, PRN
     Route: 048
  12. PRILOSEC [Concomitant]
     Active Substance: OMEPRAZOLE MAGNESIUM
     Dosage: 20 MG, QAM
     Route: 048
     Dates: start: 20160517
  13. TRACLEER [Suspect]
     Active Substance: BOSENTAN
     Indication: PULMONARY HYPERTENSION
     Dosage: 125 MG, BID
     Route: 048
     Dates: start: 20080521, end: 20161221
  14. PULMICORT TURBUHALER [Concomitant]
     Active Substance: BUDESONIDE
     Dosage: 2ML, BID
     Route: 045
     Dates: start: 20160630
  15. FOLVITE [Concomitant]
     Active Substance: FOLIC ACID
     Dosage: 1 MG, QD
     Route: 048
     Dates: start: 20161110
  16. PERFOROMIST [Concomitant]
     Active Substance: FORMOTEROL FUMARATE DIHYDRATE
     Dosage: 2 ML, BID
     Route: 045
     Dates: start: 20160709
  17. LASIX [Concomitant]
     Active Substance: FUROSEMIDE
     Dosage: 20 MG, QD
     Route: 048
     Dates: start: 20150929
  18. MEGACE [Concomitant]
     Active Substance: MEGESTROL ACETATE
     Dosage: 40 MG, QD
     Route: 048
     Dates: start: 20160826
  19. NEURONTIN [Concomitant]
     Active Substance: GABAPENTIN
     Dosage: 2-3 TABLETS, UNK
     Route: 048
     Dates: start: 20160524

REACTIONS (19)
  - Ascites [Unknown]
  - Diarrhoea [Unknown]
  - Functional gastrointestinal disorder [Unknown]
  - Raynaud^s phenomenon [Fatal]
  - Pulmonary hypertension [Fatal]
  - Interstitial lung disease [Fatal]
  - Hiatus hernia [Unknown]
  - Urinary retention [Unknown]
  - Decreased appetite [Unknown]
  - Abdominal pain [Unknown]
  - Nausea [Unknown]
  - Abdominal distension [Unknown]
  - Scleroderma [Fatal]
  - Atrial fibrillation [Unknown]
  - Atelectasis [Unknown]
  - Anaemia [Fatal]
  - Cardiomegaly [Unknown]
  - Pleural effusion [Unknown]
  - Oedema peripheral [Unknown]

NARRATIVE: CASE EVENT DATE: 201612
